FAERS Safety Report 23618897 (Version 1)
Quarter: 2024Q1

REPORT INFORMATION
  Report Type: Spontaneous
  Country: US (occurrence: US)
  Receive Date: 20240311
  Receipt Date: 20240311
  Transmission Date: 20240409
  Serious: Yes (Other)
  Sender: FDA-Public Use
  Company Number: US-AMGEN-USASP2024045884

PATIENT
  Age: 46 Year
  Sex: Female

DRUGS (2)
  1. RITUXIMAB [Suspect]
     Active Substance: RITUXIMAB
     Indication: Haemoglobinuria
     Dosage: 375 MILLIGRAM/SQ. METER, QWK
     Route: 065
  2. HUMAN RED BLOOD CELL [Concomitant]
     Active Substance: HUMAN RED BLOOD CELL
     Indication: Haemoglobinuria
     Dosage: TWO UNITS+ADDITIONAL UNIT

REACTIONS (3)
  - Syphilis [Unknown]
  - Drug ineffective for unapproved indication [Unknown]
  - Off label use [Unknown]
